FAERS Safety Report 8886679 (Version 1)
Quarter: 2012Q4

REPORT INFORMATION
  Report Type: Report from Study
  Country: JP (occurrence: JP)
  Receive Date: 20121105
  Receipt Date: 20121105
  Transmission Date: 20130627
  Serious: Yes (Other)
  Sender: FDA-Public Use
  Company Number: JP-VERTEX PHARMACEUTICAL INC.-AE-2012-007330

PATIENT
  Age: 52 Year
  Sex: Female

DRUGS (7)
  1. TELAPREVIR [Suspect]
     Indication: CHRONIC HEPATITIS C
     Dosage: 2250 mg, qd
     Route: 048
     Dates: start: 20120319, end: 20120329
  2. TELAPREVIR [Suspect]
     Dosage: 1500 mg, qd
     Route: 048
     Dates: start: 20120330, end: 20120416
  3. RIBAVIRIN [Suspect]
     Indication: CHRONIC HEPATITIS C
     Dosage: 600 mg, qd
     Route: 048
     Dates: start: 20120319, end: 20120416
  4. PEGINTERFERON ALFA-2B [Suspect]
     Indication: CHRONIC HEPATITIS C
     Route: 058
     Dates: start: 20120319, end: 20120416
  5. L CARTIN [Concomitant]
     Dosage: 900 mg, qd
     Route: 048
     Dates: start: 20120319, end: 20120416
  6. PARIET [Concomitant]
     Route: 048
     Dates: start: 20120319, end: 20120416
  7. REBAMIPIDE [Concomitant]
     Route: 048
     Dates: start: 20120319, end: 20120416

REACTIONS (3)
  - Decreased appetite [Recovered/Resolved]
  - Nausea [Recovered/Resolved]
  - Dysgeusia [Recovered/Resolved]
